FAERS Safety Report 4876851-6 (Version None)
Quarter: 2005Q4

REPORT INFORMATION
  Report Type: 
  Country: None (occurrence: None)
  Receive Date: 20051206
  Receipt Date: 20050804
  Transmission Date: 20060501
  Serious: No
  Sender: FDA-Public Use
  Company Number: USA0508104242

PATIENT
  Age: 58 Year
  Sex: Female
  Weight: 57 kg

DRUGS (7)
  1. CYMBALTA [Suspect]
     Indication: ATTENTION DEFICIT/HYPERACTIVITY DISORDER
     Dosage: 60 MG DAY
     Dates: start: 20050601
  2. ESZOPICLONE [Concomitant]
  3. AMBIEN [Concomitant]
  4. XANAX [Concomitant]
  5. VESICARE [Concomitant]
  6. SINGULAIR [Concomitant]
  7. ZYRTEC [Concomitant]

REACTIONS (8)
  - APATHY [None]
  - DEPRESSED MOOD [None]
  - DEPRESSION [None]
  - DIARRHOEA [None]
  - ENERGY INCREASED [None]
  - FEELING ABNORMAL [None]
  - HEADACHE [None]
  - URTICARIA [None]
